FAERS Safety Report 5407826-6 (Version None)
Quarter: 2007Q3

REPORT INFORMATION
  Report Type: 
  Country: None (occurrence: None)
  Receive Date: 20070713
  Receipt Date: 20070503
  Transmission Date: 20080115
  Serious: No
  Sender: FDA-Public Use
  Company Number: 2007SP001635

PATIENT
  Age: 83 Year
  Sex: Male
  Weight: 73.7095 kg

DRUGS (4)
  1. LUNESTA [Suspect]
     Indication: INSOMNIA
     Dosage: 2 MG; ORAL
     Route: 048
     Dates: start: 20070501
  2. HYTRIN [Concomitant]
  3. BETA BLOCKING AGENTS AND OTHER ANTIHYPERTENSI [Concomitant]
  4. ATOVRASTATIN CALCIUM [Concomitant]

REACTIONS (1)
  - INSOMNIA [None]
